FAERS Safety Report 5446128-9 (Version None)
Quarter: 2007Q3

REPORT INFORMATION
  Report Type: 
  Country: None (occurrence: None)
  Receive Date: 20070904
  Receipt Date: 20070809
  Transmission Date: 20080115
  Serious: Yes (Hospitalization)
  Sender: FDA-Public Use
  Company Number: 6036827

PATIENT
  Age: 17 Year
  Sex: Female

DRUGS (16)
  1. ETOPOSIDE [Suspect]
     Indication: HODGKIN'S DISEASE
     Dosage: 280 MG (280 MG,1 IN 1 D);
     Dates: start: 20070522
  2. NAVELBINE [Suspect]
     Indication: HODGKIN'S DISEASE
     Dosage: INTRAVENOUS (NOT OTHERWISE SPECIFIED)
     Route: 042
     Dates: start: 20070522, end: 20070527
  3. HOLOXAN (POWDER FOR SOLUTION FOR INJECTION) (IFOSFAMIDE) [Suspect]
     Indication: HODGKIN'S DISEASE
     Dosage: 2600 MG (2600 MG, 1 IN 1 D); INTRAVENOUS (NOT OTERWISE SPECIFIED)
     Route: 042
     Dates: start: 20070522, end: 20070527
  4. MITOGUAZONE (MITOGUAZONE) [Suspect]
     Indication: HODGKIN'S DISEASE
     Dosage: INTRAVENOUS
     Route: 042
     Dates: start: 20070522, end: 20070527
  5. AMIKACIN [Suspect]
     Indication: DRUG USE FOR UNKNOWN INDICATION
     Dosage: 990 MG (990 MG,1 IN 1 D); INTRAVENOUS (NOT OTHERWISE SPECIFIED)
     Route: 042
     Dates: start: 20070529, end: 20070612
  6. FORTUM (POWDER FOR SOLUTION FOR INJECTION) (CEFTAZIDIME) [Suspect]
     Indication: DRUG USE FOR UNKNOWN INDICATION
     Dosage: 3000 MG (1000 MG, 3 IN 1 D); INTRAVENOUS (NOT OTHERWISE SPECIFIED)
     Route: 042
     Dates: start: 20070529, end: 20070603
  7. BACTRIM [Suspect]
     Indication: DRUG USE FOR UNKNOWN INDICATION
     Dosage: INTRAVENOUS (NOT OTHERWISE SPECIFIED)
     Route: 042
     Dates: start: 20070529, end: 20070601
  8. VANCOMYCIN HCL [Suspect]
     Indication: DRUG USE FOR UNKNOWN INDICATION
     Dosage: 1980 MG (495 MG,4 IN 1 D); INTRAVENOUS (NOT OTHERWISE SPECIFIED)
     Route: 042
     Dates: start: 20070529, end: 20070601
  9. GRAMOCYTE (SOLUTION FOR INJECTION) (LENOGRASTIM) [Concomitant]
  10. LOVENOX (SOLUTION FOR INJECTION) (ENOXAPARIN SOLUTION) [Concomitant]
  11. RANIPLEX (SOLUTION FOR INJECTION) (RANITIDINE HYDROCHLORIDE) [Concomitant]
  12. CLONAZEPAM [Concomitant]
  13. ATARAX [Concomitant]
  14. MORPHINE (SOLUTION FOR INJECTION) [Concomitant]
  15. PERFALGAN (CONCENTRATE FOR SOLUTION FOR INFUSION) (PARACETAMOL) [Concomitant]
  16. FUNGIZONE (POWDER FOR SOLUTION FOR INJECTION) (AMPHOTERICIN B) [Concomitant]

REACTIONS (6)
  - ASTHENIA [None]
  - OEDEMA [None]
  - PAIN IN EXTREMITY [None]
  - PURPURA [None]
  - TOXIC EPIDERMAL NECROLYSIS [None]
  - WEIGHT INCREASED [None]
